FAERS Safety Report 8273264-4 (Version None)
Quarter: 2012Q2

REPORT INFORMATION
  Report Type: 
  Country: None (occurrence: None)
  Receive Date: 20120411
  Receipt Date: 20120406
  Transmission Date: 20120825
  Serious: Yes (Other)
  Sender: FDA-Public Use
  Company Number: US-PFIZER INC-2012047951

PATIENT
  Sex: Female
  Weight: 77 kg

DRUGS (8)
  1. HYOSCYAMINE [Concomitant]
     Dosage: 0.125 MG, 4X/DAY
  2. LYRICA [Suspect]
     Indication: FIBROMYALGIA
     Dosage: 150 MG, 2X/DAY
     Route: 048
  3. PROMETHAZINE [Concomitant]
     Dosage: 25 MG, 4X/DAY
  4. TRAMADOL [Concomitant]
     Dosage: 50 MG, AS NEEDED
  5. CYCLOBENZAPRINE [Concomitant]
     Dosage: 10 MG, 3X/DAY
  6. ACETYLSALICYLIC ACID [Concomitant]
     Indication: MIGRAINE
     Dosage: UNK
  7. PEPCID AC [Concomitant]
     Dosage: UNK
  8. PHAZYME [Concomitant]
     Dosage: 180 MG, UNK

REACTIONS (2)
  - BACK INJURY [None]
  - FIBROMYALGIA [None]
